FAERS Safety Report 9976277 (Version 1)
Quarter: 2014Q1

REPORT INFORMATION
  Report Type: Report from Study
  Country: US (occurrence: US)
  Receive Date: 20140306
  Receipt Date: 20140306
  Transmission Date: 20141002
  Serious: No
  Sender: FDA-Public Use
  Company Number: US-ABBVIE-13P-163-1167152-00

PATIENT
  Age: 53 Year
  Sex: Male

DRUGS (2)
  1. HUMIRA [Suspect]
     Indication: RHEUMATOID ARTHRITIS
     Dosage: REINITIATED
     Route: 058
     Dates: start: 20131001
  2. PREDNISONE [Concomitant]
     Indication: PRODUCT USED FOR UNKNOWN INDICATION
     Dosage: TAPER
     Dates: start: 20131011, end: 20131102

REACTIONS (2)
  - Arthralgia [Unknown]
  - Arthralgia [Unknown]
